FAERS Safety Report 22178470 (Version 1)
Quarter: 2023Q2

REPORT INFORMATION
  Report Type: Spontaneous
  Country: CH (occurrence: CH)
  Receive Date: 20230405
  Receipt Date: 20230405
  Transmission Date: 20230722
  Serious: Yes (Other)
  Sender: FDA-Public Use
  Company Number: CH-009507513-2304CHE000931

PATIENT
  Sex: Male

DRUGS (1)
  1. TEMODAL [Suspect]
     Active Substance: TEMOZOLOMIDE
     Indication: Glioblastoma
     Dosage: 150-200MG/KG BODY WEIGHT DAY 1-5, REPEAT DAY 28/ DOSIS NOT REPORTED

REACTIONS (1)
  - Malignant neoplasm progression [Unknown]
